FAERS Safety Report 6566885-8 (Version None)
Quarter: 2010Q1

REPORT INFORMATION
  Report Type: 
  Country: None (occurrence: None)
  Receive Date: 20100202
  Receipt Date: 20100129
  Transmission Date: 20100710
  Serious: Yes (Other)
  Sender: FDA-Public Use
  Company Number: D0064783A

PATIENT

DRUGS (1)
  1. ATRIANCE [Suspect]
     Route: 065

REACTIONS (1)
  - CARDIAC FAILURE [None]
